FAERS Safety Report 8466172-7 (Version None)
Quarter: 2012Q2

REPORT INFORMATION
  Report Type: 
  Country: None (occurrence: None)
  Receive Date: 20120620
  Receipt Date: 20120620
  Transmission Date: 20120825
  Serious: Yes (Other)
  Sender: FDA-Public Use
  Company Number: None

PATIENT
  Age: 38 Year
  Sex: Female
  Weight: 55.7924 kg

DRUGS (1)
  1. ESTRACE [Suspect]
     Indication: VULVOVAGINAL DRYNESS
     Dosage: {1 GRAM ONCE PER DAY VAG
     Route: 067
     Dates: start: 20120619, end: 20120619

REACTIONS (1)
  - ASTHMA [None]
